FAERS Safety Report 5139616-6 (Version None)
Quarter: 2006Q4

REPORT INFORMATION
  Report Type: 
  Country: None (occurrence: None)
  Receive Date: 20061024
  Receipt Date: 20061017
  Transmission Date: 20070319
  Serious: Yes (Death)
  Sender: FDA-Public Use
  Company Number: 2006-149187-NL

PATIENT

DRUGS (2)
  1. DANAPAROID SODIUM [Suspect]
     Indication: HEPARIN-INDUCED THROMBOCYTOPENIA
     Dosage: DF
  2. HEPARIN [Concomitant]

REACTIONS (1)
  - PULMONARY EMBOLISM [None]
